FAERS Safety Report 10254890 (Version 5)
Quarter: 2015Q4

REPORT INFORMATION
  Report Type: Report from Study
  Country: CA (occurrence: CA)
  Receive Date: 20140624
  Receipt Date: 20151102
  Transmission Date: 20160304
  Serious: Yes (Other)
  Sender: FDA-Public Use
  Company Number: PHHY2013CA086555

PATIENT
  Sex: Female

DRUGS (6)
  1. SANDOSTATIN [Concomitant]
     Active Substance: OCTREOTIDE ACETATE
     Indication: PRODUCT USED FOR UNKNOWN INDICATION
     Dosage: UNK
     Route: 065
  2. GLEEVEC [Suspect]
     Active Substance: IMATINIB MESYLATE
     Indication: CHRONIC MYELOID LEUKAEMIA
     Dosage: 400 MG, QD
     Route: 048
     Dates: start: 200406
  3. RAMIPRIL. [Concomitant]
     Active Substance: RAMIPRIL
     Dosage: 2.5 MG, BID
     Route: 065
     Dates: start: 201406
  4. RAMIPRIL. [Concomitant]
     Active Substance: RAMIPRIL
     Dosage: 2 MG, UNK
     Route: 065
  5. CRESTOR [Concomitant]
     Active Substance: ROSUVASTATIN CALCIUM
     Indication: PRODUCT USED FOR UNKNOWN INDICATION
     Dosage: UNK
     Route: 065
  6. RAMIPRIL. [Concomitant]
     Active Substance: RAMIPRIL
     Indication: PRODUCT USED FOR UNKNOWN INDICATION
     Dosage: 1.25 MG, UNK
     Route: 065

REACTIONS (11)
  - Muscle spasms [Not Recovered/Not Resolved]
  - Loss of consciousness [Unknown]
  - Meralgia paraesthetica [Unknown]
  - Malaise [Unknown]
  - Clostridium difficile infection [Unknown]
  - Blood pressure fluctuation [Unknown]
  - Clostridium difficile colitis [Unknown]
  - Tremor [Unknown]
  - Vomiting [Unknown]
  - Thrombosis [Unknown]
  - Pain [Unknown]

NARRATIVE: CASE EVENT DATE: 2013
